FAERS Safety Report 5682267-5 (Version None)
Quarter: 2008Q1

REPORT INFORMATION
  Report Type: 
  Country: None (occurrence: None)
  Receive Date: 20080326
  Receipt Date: 20080326
  Transmission Date: 20080703
  Serious: No
  Sender: FDA-Public Use
  Company Number: None

PATIENT
  Sex: Female
  Weight: 132.4503 kg

DRUGS (1)
  1. ORTHO-CEPT [Suspect]
     Indication: ORAL CONTRACEPTION
     Dosage: 0.15-0.03 DAILY P.O.
     Route: 048
     Dates: start: 20060301

REACTIONS (2)
  - ANXIETY [None]
  - PHARMACEUTICAL PRODUCT COMPLAINT [None]
